FAERS Safety Report 9642492 (Version 1)
Quarter: 2013Q4

REPORT INFORMATION
  Report Type: Spontaneous
  Country: US (occurrence: US)
  Receive Date: 20131024
  Receipt Date: 20131024
  Transmission Date: 20140711
  Serious: Yes (Other)
  Sender: FDA-Public Use
  Company Number: US-JNJCP-30000184932

PATIENT
  Sex: Female
  Weight: 70 kg

DRUGS (6)
  1. NEUTROGENA HEALTHY SKIN RADIANCE CREAM SPF 15 [Suspect]
     Indication: DRY SKIN PROPHYLAXIS
     Dosage: PEA SIZE DAB, TWICE A DAY
     Route: 061
     Dates: start: 20131014, end: 20131014
  2. LISINOPRIL 20 MG [Concomitant]
     Indication: HYPERTENSION
     Dosage: 20 MG,ONE PER DAY, SINCE FIVE PLUS YEARS
  3. PHARBEST IBUPROFEN OTC STORE BRAND [Concomitant]
     Indication: PAIN
     Dosage: AS NEEDED
  4. TRAZADONE [Concomitant]
     Indication: SLEEP DISORDER
     Dosage: ONE PER DAY, SINCE FIVE PLUS YEARS
  5. VALIUM [Concomitant]
     Indication: ANXIETY
     Dosage: TWO PER DAY, SINCE FIVE PLUS YEARS
  6. VENLAFAXINE 150 MG [Concomitant]
     Indication: DEPRESSION
     Dosage: 150 MG,ONE PER DAY, SINCE FIVE PLUS YEARS

REACTIONS (6)
  - Application site pain [Recovering/Resolving]
  - Nausea [Recovering/Resolving]
  - Application site erythema [Recovering/Resolving]
  - Application site scab [Recovering/Resolving]
  - Throat tightness [Recovering/Resolving]
  - Expired drug administered [Unknown]
